FAERS Safety Report 8410195-0 (Version None)
Quarter: 2012Q2

REPORT INFORMATION
  Report Type: 
  Country: None (occurrence: None)
  Receive Date: 20120605
  Receipt Date: 20120530
  Transmission Date: 20120825
  Serious: Yes (Other)
  Sender: FDA-Public Use
  Company Number: PHHY2012BR047239

PATIENT
  Sex: Female
  Weight: 67 kg

DRUGS (5)
  1. EXFORGE [Suspect]
     Indication: HYPERTENSION
     Dosage: 1 DF (160/5MG) DAILY
     Route: 048
  2. CITALOPRAM [Concomitant]
     Indication: DEPRESSION
     Dosage: 40 MG, BID
     Route: 048
  3. ENALAPRIL MALEATE [Concomitant]
     Indication: HYPERTENSION
     Dosage: 10 MG, BID
     Route: 048
  4. ALPRAZOLAM [Concomitant]
     Indication: NERVOUSNESS
     Dosage: 2 MG, BID
     Route: 048
  5. EXFORGE [Suspect]
     Indication: HYPERTENSION
     Dosage: 1 DF(160/5MG) DAILY
     Route: 048

REACTIONS (7)
  - OEDEMA PERIPHERAL [None]
  - CATARACT [None]
  - ABDOMINAL PAIN UPPER [None]
  - GLAUCOMA [None]
  - BACK PAIN [None]
  - HEADACHE [None]
  - BLOOD PRESSURE INCREASED [None]
